FAERS Safety Report 5394150-3 (Version None)
Quarter: 2007Q3

REPORT INFORMATION
  Report Type: 
  Country: None (occurrence: None)
  Receive Date: 20070723
  Receipt Date: 20070710
  Transmission Date: 20080115
  Serious: Yes (Other)
  Sender: FDA-Public Use
  Company Number: BR-ROCHE-506901

PATIENT
  Age: 22 Year
  Sex: Male
  Weight: 90 kg

DRUGS (1)
  1. ISOTRETINOIN [Suspect]
     Indication: FOLLICULITIS
     Route: 048
     Dates: start: 20070520, end: 20070521

REACTIONS (1)
  - APPENDICITIS [None]
